FAERS Safety Report 19904142 (Version 1)
Quarter: 2021Q3

REPORT INFORMATION
  Report Type: Spontaneous
  Country: CA (occurrence: CA)
  Receive Date: 20210930
  Receipt Date: 20210930
  Transmission Date: 20211014
  Serious: Yes (Other)
  Sender: FDA-Public Use
  Company Number: CA-TEVA-2021-CA-1959006

PATIENT
  Age: 59 Year
  Sex: Female

DRUGS (2)
  1. TYLENOL [Concomitant]
     Active Substance: ACETAMINOPHEN
     Indication: ABDOMINAL PAIN
  2. IBUPROFEN. [Suspect]
     Active Substance: IBUPROFEN
     Indication: ABDOMINAL PAIN
     Route: 048

REACTIONS (5)
  - Acute kidney injury [Unknown]
  - Blood creatinine increased [Unknown]
  - Nausea [Unknown]
  - Hypophagia [Unknown]
  - Vomiting [Unknown]
